FAERS Safety Report 21953432 (Version 1)
Quarter: 2023Q1

REPORT INFORMATION
  Report Type: Report from Study
  Country: CA (occurrence: CA)
  Receive Date: 20230204
  Receipt Date: 20230204
  Transmission Date: 20230418
  Serious: Yes (Other)
  Sender: FDA-Public Use
  Company Number: CA-002147023-NVSC2022CA081134

PATIENT
  Age: 52 Year
  Sex: Female

DRUGS (5)
  1. HYRIMOZ [Suspect]
     Active Substance: ADALIMUMAB-ADAZ
     Indication: Crohn^s disease
     Dosage: 40 MG
     Route: 058
     Dates: start: 20220220
  2. HYRIMOZ [Suspect]
     Active Substance: ADALIMUMAB-ADAZ
     Dosage: 40 MG, Q2W
     Route: 058
     Dates: start: 20230121
  3. DEXILANT [Concomitant]
     Active Substance: DEXLANSOPRAZOLE
     Indication: Product used for unknown indication
     Dosage: UNK
     Route: 065
  4. LOPERAMIDE [Concomitant]
     Active Substance: LOPERAMIDE
     Indication: Product used for unknown indication
     Dosage: UNK
     Route: 065
  5. CIPROFLOXACIN [Concomitant]
     Active Substance: CIPROFLOXACIN
     Indication: Product used for unknown indication
     Dosage: UNK
     Route: 065

REACTIONS (17)
  - Intestinal haemorrhage [Unknown]
  - Small intestine ulcer [Unknown]
  - Small intestinal ulcer haemorrhage [Unknown]
  - Frequent bowel movements [Unknown]
  - Crohn^s disease [Unknown]
  - Haematochezia [Not Recovered/Not Resolved]
  - Abdominal distension [Unknown]
  - Diarrhoea [Unknown]
  - SARS-CoV-2 test positive [Unknown]
  - Anaemia [Unknown]
  - Asthenia [Unknown]
  - Malaise [Unknown]
  - Arthralgia [Unknown]
  - Psoriasis [Unknown]
  - Skin lesion [Unknown]
  - Abdominal pain [Unknown]
  - Inappropriate schedule of product administration [Unknown]

NARRATIVE: CASE EVENT DATE: 20220722
